FAERS Safety Report 23581283 (Version 1)
Quarter: 2024Q1

REPORT INFORMATION
  Report Type: Spontaneous
  Country: FR (occurrence: FR)
  Receive Date: 20240229
  Receipt Date: 20240229
  Transmission Date: 20240409
  Serious: Yes (Life-Threatening, Hospitalization)
  Sender: FDA-Public Use
  Company Number: None

PATIENT
  Age: 37 Year
  Sex: Male
  Weight: 138 kg

DRUGS (6)
  1. LIDOCAINE [Suspect]
     Active Substance: LIDOCAINE
     Indication: General anaesthesia
     Dosage: THERAPY START DATE- 29-JAN-2024 08:25?THERAPY END DATE- 29-JAN-2024
     Route: 042
     Dates: start: 20240129
  2. PROPOFOL [Suspect]
     Active Substance: PROPOFOL
     Indication: General anaesthesia
     Dosage: THERAPY START DATE- 29-JAN-2024 08:38?THERAPY END DATE-29-JAN-2024
     Route: 042
     Dates: start: 20240129
  3. REMIFENTANIL HYDROCHLORIDE [Suspect]
     Active Substance: REMIFENTANIL HYDROCHLORIDE
     Indication: General anaesthesia
     Dosage: THERAPY START DATE- 29-JAN-2024 08:37?THERAPY END DATE- 29-JAN-2024
     Route: 042
     Dates: start: 20240129
  4. ROCURONIUM BROMIDE [Suspect]
     Active Substance: ROCURONIUM BROMIDE
     Indication: General anaesthesia
     Dosage: THERAPY START DATE- 29-JAN-2024 08:38?THERAPY END DATE- 29-JAN-2024
     Route: 042
     Dates: start: 20240129
  5. CEFOXITIN [Suspect]
     Active Substance: CEFOXITIN SODIUM
     Indication: General anaesthesia
     Dosage: THERAPY START DATE- 29-JAN-2024 08:06?THERAPY END DATE- 29-JAN-2024
     Route: 042
     Dates: start: 20240129
  6. MAGNESIUM (SULFATE DE) [Concomitant]
     Indication: General anaesthesia
     Dosage: THERAPY START DATE- 29-JAN-2024 08:34?THERAPY END DATE- 29-JAN-2024
     Route: 042
     Dates: start: 20240129

REACTIONS (1)
  - Anaphylactic reaction [Recovered/Resolved]

NARRATIVE: CASE EVENT DATE: 20240129
